FAERS Safety Report 21740288 (Version 1)
Quarter: 2022Q4

REPORT INFORMATION
  Report Type: Spontaneous
  Country: CZ (occurrence: CZ)
  Receive Date: 20221216
  Receipt Date: 20221216
  Transmission Date: 20230113
  Serious: Yes (Other)
  Sender: FDA-Public Use
  Company Number: None

PATIENT
  Age: 37 Year
  Sex: Female
  Weight: 63 kg

DRUGS (2)
  1. IBUPROFEN [Suspect]
     Active Substance: IBUPROFEN
     Indication: Headache
     Dosage: ACCORDING TO PAIN LEVEL; LAST INTERVAL WAS 12 HOURS
     Route: 048
     Dates: start: 20221011, end: 20221011
  2. TIZANIDINE [Concomitant]
     Active Substance: TIZANIDINE
     Indication: Spinal pain
     Dosage: USED APPROX 4 HOURS BEFORE BRUFEN
     Route: 048
     Dates: start: 20221011, end: 20221011

REACTIONS (1)
  - Swelling face [Recovered/Resolved]

NARRATIVE: CASE EVENT DATE: 20221011
